FAERS Safety Report 10555443 (Version 1)
Quarter: 2014Q4

REPORT INFORMATION
  Report Type: Spontaneous
  Country: US (occurrence: US)
  Receive Date: 20141030
  Receipt Date: 20141030
  Transmission Date: 20150529
  Serious: Yes (Death, Hospitalization, Other)
  Sender: FDA-Public Use
  Company Number: US-UCBSA-2014016902

PATIENT
  Age: 43 Year
  Sex: Female
  Weight: 63 kg

DRUGS (6)
  1. PROPRANOL [Suspect]
     Active Substance: PROPRANOLOL HYDROCHLORIDE
     Dosage: UNK
     Route: 048
  2. SALICYLATES NOS [Concomitant]
     Active Substance: UNSPECIFIED INGREDIENT
  3. ZOLPIDEM [Suspect]
     Active Substance: ZOLPIDEM\ZOLPIDEM TARTRATE
     Dosage: UNK
     Route: 048
  4. ALPRAZOLAM. [Suspect]
     Active Substance: ALPRAZOLAM
     Dosage: UNK
     Route: 048
  5. TRAMADOL [Suspect]
     Active Substance: TRAMADOL
     Dosage: UNK
     Route: 048
  6. PARACETAMOL [Concomitant]
     Active Substance: ACETAMINOPHEN

REACTIONS (6)
  - Overdose [Unknown]
  - Cardiogenic shock [Fatal]
  - Cardiac arrest [Unknown]
  - Hypotension [Unknown]
  - Drug abuse [Unknown]
  - Off label use [Unknown]
